FAERS Safety Report 8126089-4 (Version None)
Quarter: 2012Q1

REPORT INFORMATION
  Report Type: 
  Country: None (occurrence: None)
  Receive Date: 20120209
  Receipt Date: 20120202
  Transmission Date: 20120608
  Serious: Yes (Other)
  Sender: FDA-Public Use
  Company Number: PHEH2012US002994

PATIENT
  Sex: Male

DRUGS (4)
  1. BENAZEPRIL HYDROCHLORIDE [Concomitant]
  2. LOTREL [Concomitant]
  3. LOSARTAN POTASSIUM [Concomitant]
  4. TEKTURNA [Suspect]
     Dosage: UNK
     Dates: start: 20110501

REACTIONS (2)
  - BLINDNESS [None]
  - OPTIC ISCHAEMIC NEUROPATHY [None]
